FAERS Safety Report 8611319-2 (Version None)
Quarter: 2012Q3

REPORT INFORMATION
  Report Type: 
  Country: None (occurrence: None)
  Receive Date: 20120822
  Receipt Date: 20120813
  Transmission Date: 20120928
  Serious: Yes (Hospitalization, Other)
  Sender: FDA-Public Use
  Company Number: DE-ASTRAZENECA-2012SE56914

PATIENT
  Age: 69 Year
  Sex: Female

DRUGS (16)
  1. RASILEZ [Suspect]
     Route: 048
     Dates: start: 20090101
  2. THYREOIDIN [Concomitant]
  3. HYDROCHLOROTHIAZIDE [Suspect]
  4. MOXONIDINE [Concomitant]
  5. PREDNISONE TAB [Concomitant]
  6. RAMIPRIL [Suspect]
     Route: 048
     Dates: start: 20060101, end: 20100710
  7. RASILEZ [Suspect]
     Route: 048
     Dates: start: 20090101
  8. AMLODIPINE [Concomitant]
     Dates: start: 20060101, end: 20100710
  9. PLAVIX [Concomitant]
  10. ATACAND [Suspect]
     Route: 048
     Dates: start: 20060101
  11. TORSEMIDE [Concomitant]
  12. BIOLOGICA [Suspect]
  13. NORVASC [Concomitant]
  14. HUMALOG [Concomitant]
     Dates: start: 19950101
  15. LANTUS [Concomitant]
     Dates: start: 19950101
  16. EZETIMIBE [Concomitant]

REACTIONS (2)
  - RHEUMATOID ARTHRITIS [None]
  - UROSEPSIS [None]
